FAERS Safety Report 7057605-1 (Version None)
Quarter: 2010Q4

REPORT INFORMATION
  Report Type: 
  Country: None (occurrence: None)
  Receive Date: 20101022
  Receipt Date: 20101011
  Transmission Date: 20110411
  Serious: Yes (Hospitalization, Other)
  Sender: FDA-Public Use
  Company Number: US-ACTELION-A-US2010-39947

PATIENT
  Sex: Male

DRUGS (23)
  1. BOSENTAN TABLET 125 MG US [Suspect]
     Indication: PULMONARY ARTERIAL HYPERTENSION
     Dosage: 125 MG, BID
     Route: 048
     Dates: start: 20091123, end: 20100801
  2. REVATIO [Concomitant]
  3. ACETAMINOPHEN [Concomitant]
  4. ALLOPURINOL [Concomitant]
  5. ASPIRIN [Concomitant]
  6. ZYRTEC [Concomitant]
  7. PLAVIX [Concomitant]
  8. DIGOXIN [Concomitant]
  9. ZETIA [Concomitant]
  10. FENOFIBRATE [Concomitant]
  11. ADVAIR DISKUS 100/50 [Concomitant]
  12. FUROSEMIDE [Concomitant]
  13. LANTUS [Concomitant]
  14. HUMALOG [Concomitant]
  15. LEVAQUIN [Concomitant]
  16. SINGULAIR [Concomitant]
  17. MULTI-VITAMIN [Concomitant]
  18. PROTONIX [Concomitant]
  19. OXYCODONE [Concomitant]
  20. REQUIP [Concomitant]
  21. SPIRIVA [Concomitant]
  22. ALBUTEROL [Concomitant]
  23. PREDNISONE [Concomitant]

REACTIONS (10)
  - ACUTE RESPIRATORY FAILURE [None]
  - ALANINE AMINOTRANSFERASE INCREASED [None]
  - ASPARTATE AMINOTRANSFERASE INCREASED [None]
  - BLOOD BILIRUBIN INCREASED [None]
  - FLUID RETENTION [None]
  - HEPATITIS [None]
  - HYPOXIA [None]
  - LIVER FUNCTION TEST ABNORMAL [None]
  - PNEUMONIA [None]
  - RENAL FAILURE [None]
